FAERS Safety Report 7284148-2 (Version None)
Quarter: 2011Q1

REPORT INFORMATION
  Report Type: 
  Country: None (occurrence: None)
  Receive Date: 20110209
  Receipt Date: 20110127
  Transmission Date: 20110831
  Serious: Yes (Hospitalization)
  Sender: FDA-Public Use
  Company Number: NL-CELGENEUS-114-21880-11012716

PATIENT
  Sex: Female
  Weight: 74 kg

DRUGS (4)
  1. REVLIMID [Suspect]
     Indication: MULTIPLE MYELOMA
     Route: 048
     Dates: start: 20101217, end: 20110107
  2. PREDNISONE [Suspect]
     Indication: MULTIPLE MYELOMA
     Route: 048
     Dates: start: 20101217, end: 20101219
  3. MELPHALAN [Suspect]
     Indication: MULTIPLE MYELOMA
     Route: 048
     Dates: start: 20101217, end: 20101219
  4. ANTIBIOTICS [Concomitant]
     Indication: WOUND
     Route: 065
     Dates: start: 20110101

REACTIONS (1)
  - OSTEOMYELITIS [None]
